FAERS Safety Report 9693243 (Version 1)
Quarter: 2013Q4

REPORT INFORMATION
  Report Type: Spontaneous
  Country: US (occurrence: None)
  Receive Date: 20131115
  Receipt Date: 20131115
  Transmission Date: 20140711
  Serious: No
  Sender: FDA-Public Use
  Company Number: None

PATIENT
  Age: 49 Year
  Sex: Male

DRUGS (22)
  1. LEFLUNOMIDE [Suspect]
     Indication: RHEUMATOID ARTHRITIS
     Dosage: TOOK 3 DOSES (EVERY 3 WEEKS DOSING)
     Dates: start: 20120530, end: 20120823
  2. REMICADE [Suspect]
     Dates: start: 201203, end: 20120606
  3. ALEVE [Concomitant]
  4. ASPIRIN [Concomitant]
  5. CALCIUM [Concomitant]
  6. CITRUCEL [Concomitant]
  7. CLORAZEPATE DIPOTASSIUM [Concomitant]
  8. CYMBALTA [Concomitant]
  9. FISH OIL [Concomitant]
  10. FUROSEMIDE [Concomitant]
  11. HUMALOG [Concomitant]
  12. LISINOPRIL [Concomitant]
  13. L-METHFLOLATE [Concomitant]
  14. LOSARTAN [Concomitant]
  15. LYRICA [Concomitant]
  16. METOCLOPRAMIDE HCI [Concomitant]
  17. NEXIUM [Concomitant]
  18. OXYCODONE(PRN) [Concomitant]
  19. PLAVIX [Concomitant]
  20. POTASSIUM TABLET [Concomitant]
  21. TESTIM GEL [Concomitant]
  22. ZETIA [Concomitant]

REACTIONS (1)
  - Drug-induced liver injury [None]
